FAERS Safety Report 7487331-6 (Version None)
Quarter: 2011Q2

REPORT INFORMATION
  Report Type: 
  Country: None (occurrence: None)
  Receive Date: 20110518
  Receipt Date: 20110504
  Transmission Date: 20111010
  Serious: Yes (Hospitalization)
  Sender: FDA-Public Use
  Company Number: US-ELI_LILLY_AND_COMPANY-US201003004220

PATIENT
  Sex: Female

DRUGS (20)
  1. PEPCID [Concomitant]
  2. TRIAMTERENE AND HYDROCHLOROTHIAZIDE [Concomitant]
  3. FORTEO [Suspect]
     Dosage: 20 UG, DAILY (1/D)
  4. ANAFRANIL [Concomitant]
     Dosage: 175 MG, EACH EVENING
  5. LORTAB [Concomitant]
  6. PHENERGAN HCL [Concomitant]
  7. BACLOFEN [Concomitant]
     Indication: MUSCLE RELAXANT THERAPY
  8. CALTRATE + VITAMIN D [Concomitant]
     Dosage: UNK, 2/D
  9. CHLORAL HYDRATE [Concomitant]
     Indication: SLEEP DISORDER
  10. FLONASE [Concomitant]
  11. LACTULOSE [Concomitant]
  12. FERROUS SULFATE TAB [Concomitant]
  13. DIAZEPAM [Concomitant]
     Dosage: UNK, AS NEEDED
  14. OMEPRAZOLE [Concomitant]
  15. VITAMIN E [Concomitant]
  16. FORTEO [Suspect]
     Indication: OSTEOPOROSIS
     Dosage: 20 UG, DAILY (1/D)
     Dates: start: 20091201
  17. VITAMIN B6 [Concomitant]
  18. METHADONE HCL [Concomitant]
  19. NYSTATIN [Concomitant]
  20. ZOCOR [Concomitant]

REACTIONS (9)
  - KNEE ARTHROPLASTY [None]
  - SKIN DISORDER [None]
  - PAIN IN EXTREMITY [None]
  - BACK DISORDER [None]
  - OEDEMA PERIPHERAL [None]
  - MYALGIA [None]
  - CELLULITIS [None]
  - BONE DENSITY ABNORMAL [None]
  - ERYTHEMA [None]
